FAERS Safety Report 8762514 (Version 1)
Quarter: 2012Q4

REPORT INFORMATION
  Report Type: 
  Country: US (occurrence: US)
  Receive Date: 20120903
  Receipt Date: 20120903
  Transmission Date: 20130627
  Serious: Yes (Other)
  Sender: FDA-Public Use
  Company Number: US-PFIZER INC-2012208439

PATIENT
  Age: 16 Year
  Sex: Female

DRUGS (2)
  1. CLINDAMYCIN HCL [Suspect]
     Indication: OROPHARYNGEAL PAIN
     Dosage: UNK
  2. ZITHROMAX [Suspect]
     Indication: OROPHARYNGEAL PAIN

REACTIONS (3)
  - Drug ineffective [Unknown]
  - Condition aggravated [Unknown]
  - Infectious mononucleosis [Unknown]
